FAERS Safety Report 11248969 (Version 1)
Quarter: 2015Q2

REPORT INFORMATION
  Report Type: Spontaneous
  Country: US (occurrence: None)
  Receive Date: 20150611
  Receipt Date: 20150611
  Transmission Date: 20150821
  Serious: Yes (Other)
  Sender: FDA-Public Use
  Company Number: 2014AP003720

PATIENT
  Age: 22 Year
  Sex: Female

DRUGS (3)
  1. BUDESONIDE (BUDESONIDE) [Suspect]
     Active Substance: BUDESONIDE
     Indication: CROHN^S DISEASE
  2. PREDNISONE (PREDNISONE) [Concomitant]
     Active Substance: PREDNISONE
  3. BUDESONIDE (BUDESONIDE) [Suspect]
     Active Substance: BUDESONIDE
     Indication: ENTEROCOLITIS

REACTIONS (2)
  - Ophthalmic herpes simplex [None]
  - Condition aggravated [None]
